FAERS Safety Report 9639911 (Version 1)
Quarter: 2013Q4

REPORT INFORMATION
  Report Type: Spontaneous
  Country: US (occurrence: None)
  Receive Date: 20131021
  Receipt Date: 20131021
  Transmission Date: 20140711
  Serious: Yes (Disabling, Other)
  Sender: FDA-Public Use
  Company Number: None

PATIENT
  Sex: Female
  Weight: 68.04 kg

DRUGS (17)
  1. LEVOTHYROXINE [Suspect]
     Indication: THYROID DISORDER
     Dosage: 30 1-DAILY, BEFORE BREAKFAST, BY MOUTH
     Route: 048
     Dates: start: 2009
  2. PRILOSEC [Concomitant]
  3. LEVOTHYROXINE [Concomitant]
  4. PAXIL + HYDROCHLOROTHIAZIDE [Concomitant]
  5. ZYRTEC [Concomitant]
  6. MUCINEX [Concomitant]
  7. TRAMADOL [Concomitant]
  8. PREDNISONE [Concomitant]
  9. ANTIBIOTICS [Concomitant]
  10. MULTI VITAMINS + MINERALS [Concomitant]
  11. COENZYME [Concomitant]
  12. PRIMOSE [Concomitant]
  13. OMEGA 3 [Concomitant]
  14. TAURINE + OTHER AMINOS [Concomitant]
  15. ECHINECCA [Concomitant]
  16. GINSENG [Concomitant]
  17. FO-TI -DHEA + COMPANION GEL - WHITE OAK BARK [Concomitant]

REACTIONS (1)
  - Thyroid function test abnormal [None]
